FAERS Safety Report 4973374-0 (Version None)
Quarter: 2006Q2

REPORT INFORMATION
  Report Type: 
  Country: None (occurrence: None)
  Receive Date: 20060414
  Receipt Date: 20050218
  Transmission Date: 20061013
  Serious: Yes (Hospitalization)
  Sender: FDA-Public Use
  Company Number: US-MERCK-0502USA02715

PATIENT
  Age: 66 Year
  Sex: Female
  Weight: 81 kg

DRUGS (11)
  1. VIOXX [Suspect]
     Indication: ARTHRALGIA
     Route: 048
     Dates: start: 20010101, end: 20040201
  2. VIOXX [Suspect]
     Route: 048
     Dates: start: 20040427
  3. GLUCOPHAGE [Concomitant]
     Route: 065
  4. INSULIN [Concomitant]
     Route: 065
  5. TOPROL-XL [Concomitant]
     Route: 065
  6. LASIX [Concomitant]
     Route: 065
  7. BENICAR [Concomitant]
     Route: 065
  8. PRAVACHOL [Concomitant]
     Route: 065
  9. [THERAPY UNSPECIFIED] [Concomitant]
     Route: 065
  10. ALTACE [Concomitant]
     Route: 065
  11. OMEGA-3 MARINE TRIGLYCERIDES [Concomitant]
     Route: 065

REACTIONS (41)
  - ANGINA PECTORIS [None]
  - ARTERIAL OCCLUSIVE DISEASE [None]
  - ARTERIOSCLEROSIS [None]
  - ARTHRALGIA [None]
  - ATELECTASIS [None]
  - BACK PAIN [None]
  - BURNING SENSATION [None]
  - CELLULITIS [None]
  - CHEST PAIN [None]
  - DIABETIC NEUROPATHY [None]
  - DIARRHOEA [None]
  - EXOSTOSIS [None]
  - FALL [None]
  - FATIGUE [None]
  - HEADACHE [None]
  - HYPERLIPIDAEMIA [None]
  - HYPERTENSION [None]
  - HYPOAESTHESIA [None]
  - INTERMITTENT CLAUDICATION [None]
  - INTERVERTEBRAL DISC DISPLACEMENT [None]
  - MICTURITION DISORDER [None]
  - MUSCULOSKELETAL CHEST PAIN [None]
  - NASAL CONGESTION [None]
  - NASOPHARYNGITIS [None]
  - NAUSEA [None]
  - NECK PAIN [None]
  - OEDEMA PERIPHERAL [None]
  - OSTEOARTHRITIS [None]
  - PAIN IN EXTREMITY [None]
  - PARAESTHESIA [None]
  - PELVIC PAIN [None]
  - PHARYNGEAL OEDEMA [None]
  - PLEURAL EFFUSION [None]
  - POLLAKIURIA [None]
  - PRODUCTIVE COUGH [None]
  - RESPIRATORY TRACT CONGESTION [None]
  - SLEEP DISORDER [None]
  - SPINAL OSTEOARTHRITIS [None]
  - URINARY TRACT INFECTION [None]
  - VAGINAL PAIN [None]
  - VENTRICULAR HYPOKINESIA [None]
